FAERS Safety Report 23580564 (Version 1)
Quarter: 2024Q1

REPORT INFORMATION
  Report Type: Report from Study
  Country: CN (occurrence: CN)
  Receive Date: 20240229
  Receipt Date: 20240229
  Transmission Date: 20240410
  Serious: Yes (Hospitalization)
  Sender: FDA-Public Use
  Company Number: CN-ABBVIE-5654640

PATIENT

DRUGS (1)
  1. BOTOX [Suspect]
     Active Substance: ONABOTULINUMTOXINA
     Indication: Muscle hypertrophy
     Route: 065
     Dates: start: 2022, end: 2022

REACTIONS (4)
  - Rash [Unknown]
  - Off label use [Unknown]
  - Drug hypersensitivity [Unknown]
  - Syncope [Unknown]

NARRATIVE: CASE EVENT DATE: 20220101
